FAERS Safety Report 9846921 (Version 1)
Quarter: 2014Q1

REPORT INFORMATION
  Report Type: Spontaneous
  Country: CH (occurrence: CH)
  Receive Date: 20140127
  Receipt Date: 20140127
  Transmission Date: 20141002
  Serious: Yes (Hospitalization)
  Sender: FDA-Public Use
  Company Number: CH-TEVA-458127ISR

PATIENT
  Age: 60 Year
  Sex: Male

DRUGS (51)
  1. METHOTREXATE [Suspect]
     Indication: PROPHYLAXIS
     Dosage: 20 MILLIGRAM DAILY;
     Route: 041
     Dates: start: 20131129, end: 20131129
  2. METHOTREXATE [Suspect]
     Dosage: 20 MILLIGRAM DAILY;
     Route: 041
     Dates: start: 20131202, end: 20131202
  3. NOPIL FORTE [Suspect]
     Indication: PROPHYLAXIS
     Dosage: .4286 DOSAGE FORMS DAILY; 1 DF = 800MG SULFAMETHOXAZOLE + 160MG TRIMETHOPRIM, CONTINUING
     Route: 048
     Dates: start: 201311
  4. ATORVASTATIN [Suspect]
     Indication: HYPERLIPIDAEMIA
     Dosage: 20 MILLIGRAM DAILY;
     Route: 048
     Dates: start: 20131118, end: 20131118
  5. FLAMON [Suspect]
     Indication: ESSENTIAL HYPERTENSION
     Dosage: 240 MILLIGRAM DAILY;
     Route: 048
     Dates: start: 20131118, end: 20131127
  6. FLAMON [Suspect]
     Dosage: 360 MILLIGRAM DAILY;
     Route: 048
     Dates: start: 20131128, end: 20131202
  7. ENDOXAN [Suspect]
     Indication: PROPHYLAXIS
     Dosage: 5160 MILLIGRAM DAILY;
     Route: 041
     Dates: start: 20131119, end: 20131120
  8. BUSILVEX [Suspect]
     Indication: PROPHYLAXIS
     Dosage: 138 MILLIGRAM DAILY;
     Route: 041
     Dates: start: 20131121, end: 20131121
  9. BUSILVEX [Suspect]
     Dosage: 4 DOSES IN TOTAL
     Route: 041
     Dates: start: 20131122, end: 20131124
  10. ATG FRESENIUS [Suspect]
     Indication: PROPHYLAXIS
     Dosage: 500 MILLIGRAM DAILY;
     Route: 041
     Dates: start: 20131122, end: 20131122
  11. ATG FRESENIUS [Suspect]
     Dosage: 900 MILLIGRAM DAILY;
     Route: 041
     Dates: start: 20131124, end: 20131124
  12. SANDIMMUN [Suspect]
     Indication: PROPHYLAXIS
     Dosage: 250 MILLIGRAM DAILY;
     Route: 041
     Dates: start: 20131124, end: 20131126
  13. SANDIMMUN [Suspect]
     Dosage: 275 MILLIGRAM DAILY;
     Route: 041
     Dates: start: 20131127, end: 20131130
  14. SANDIMMUN [Suspect]
     Dosage: 325 MILLIGRAM DAILY;
     Route: 041
     Dates: start: 20131201
  15. SOLU-MEDROL [Suspect]
     Indication: PROPHYLAXIS
     Dosage: 80 MILLIGRAM DAILY;
     Route: 041
     Dates: start: 20131122, end: 20131124
  16. AMIKIN [Suspect]
     Indication: BACTERIAL INFECTION
     Dosage: 1000 MILLIGRAM DAILY;
     Route: 041
     Dates: start: 20131123, end: 20131125
  17. CEFEPIME [Suspect]
     Indication: BACTERIAL INFECTION
     Dosage: 6 GRAM DAILY;
     Route: 041
     Dates: start: 20131123, end: 20131129
  18. DIFLUCAN [Suspect]
     Indication: PROPHYLAXIS
     Dosage: 57.1429 MILLIGRAM DAILY; CONTINUING
     Route: 048
     Dates: start: 201311
  19. VALTREX [Suspect]
     Indication: PROPHYLAXIS
     Dosage: 1000 MILLIGRAM DAILY; CONTINUING
     Route: 048
     Dates: start: 20131118
  20. LASIX [Suspect]
     Indication: DIURETIC THERAPY
     Dosage: 20 MILLIGRAM DAILY;
     Route: 041
     Dates: start: 20131119, end: 20131203
  21. LASIX [Suspect]
     Dosage: 40 MILLIGRAM DAILY;
     Route: 041
     Dates: start: 20131204
  22. PANTOZOL [Suspect]
     Indication: PROPHYLAXIS
     Dosage: 20 MILLIGRAM DAILY;
     Route: 048
     Dates: start: 20131118, end: 20131201
  23. PANTOZOL [Suspect]
     Dosage: 40 MILLIGRAM DAILY;
     Route: 048
     Dates: start: 20131202
  24. ZYLORIC [Suspect]
     Indication: GOUT
     Dosage: 300 MILLIGRAM DAILY;
     Route: 048
     Dates: start: 20131118, end: 20131126
  25. ALOXI [Suspect]
     Indication: NAUSEA
     Dosage: .25 MILLIGRAM DAILY;
     Route: 041
     Dates: start: 20131119, end: 20131119
  26. ALOXI [Suspect]
     Indication: VOMITING
  27. UROMITEXAN [Suspect]
     Indication: PROPHYLAXIS
     Dosage: 2400 MILLIGRAM DAILY;
     Route: 041
     Dates: start: 20131119, end: 20131119
  28. UROMITEXAN [Suspect]
     Dosage: 800 MILLIGRAM DAILY;
     Route: 041
     Dates: start: 20131120, end: 20131120
  29. UROMITEXAN [Suspect]
     Dosage: 1200 MILLIGRAM DAILY;
     Route: 041
     Dates: start: 20131121, end: 20131121
  30. EMEND [Suspect]
     Indication: NAUSEA
     Dosage: 125 MILLIGRAM DAILY;
     Route: 041
     Dates: start: 20131119, end: 20131119
  31. EMEND [Suspect]
     Indication: VOMITING
     Dosage: 80 MILLIGRAM DAILY;
     Route: 041
     Dates: start: 20131120, end: 20131128
  32. MERONEM [Suspect]
     Indication: BACTERIAL INFECTION
     Dosage: 3 GRAM DAILY; CONTINUING
     Route: 041
  33. ZOVIRAX [Suspect]
     Indication: PROPHYLAXIS
     Dosage: 250 MILLIGRAM DAILY;
     Route: 041
     Dates: end: 20131201
  34. ZOVIRAX [Suspect]
     Dosage: 1000 MILLIGRAM DAILY;
     Route: 041
     Dates: start: 20131202, end: 20131202
  35. ASPIRIN [Suspect]
     Indication: PROPHYLAXIS
     Dosage: 100 MILLIGRAM DAILY;
     Route: 048
     Dates: start: 20131118, end: 20131122
  36. TRIATEC [Suspect]
     Indication: ESSENTIAL HYPERTENSION
     Dosage: 2.5 MILLIGRAM DAILY;
     Route: 048
     Dates: start: 20131122, end: 20131122
  37. TRIATEC [Suspect]
     Dosage: ALTERNATING 1X25MG AND 2X25MG PER DAY
     Route: 048
     Dates: start: 20131201
  38. SOLU CORTEF [Suspect]
     Indication: PROPHYLAXIS
     Dosage: 100 MILLIGRAM DAILY;
     Route: 041
     Dates: start: 20131128, end: 20131128
  39. TAZOBAC [Suspect]
     Indication: BACTERIAL INFECTION
     Dosage: 13.5 MILLIGRAM DAILY;
     Route: 041
     Dates: start: 20131129, end: 20131201
  40. TRANDATE [Suspect]
     Indication: ESSENTIAL HYPERTENSION
     Dosage: 200 MILLIGRAM DAILY;
     Route: 041
     Dates: end: 20131201
  41. TRANDATE [Suspect]
     Dosage: 200 MILLIGRAM DAILY;
     Route: 041
     Dates: start: 20131203, end: 20131203
  42. DEFIBROTIDE [Concomitant]
     Indication: PRODUCT USED FOR UNKNOWN INDICATION
     Route: 065
     Dates: start: 20131123, end: 20131127
  43. TAVEGYL [Concomitant]
     Indication: PRODUCT USED FOR UNKNOWN INDICATION
     Route: 065
  44. FORTECORTIN [Concomitant]
     Indication: PRODUCT USED FOR UNKNOWN INDICATION
     Route: 065
  45. HEPARIN [Concomitant]
     Indication: PRODUCT USED FOR UNKNOWN INDICATION
     Route: 065
  46. PASPERTIN [Concomitant]
     Indication: PRODUCT USED FOR UNKNOWN INDICATION
     Route: 065
  47. FLATULEX [Concomitant]
     Indication: PRODUCT USED FOR UNKNOWN INDICATION
     Route: 065
  48. DUSPATALIN [Concomitant]
     Indication: PRODUCT USED FOR UNKNOWN INDICATION
     Route: 065
  49. LAXOBERON [Concomitant]
     Indication: PRODUCT USED FOR UNKNOWN INDICATION
     Route: 065
  50. LEUCOVORIN [Concomitant]
     Indication: PRODUCT USED FOR UNKNOWN INDICATION
     Route: 065
  51. URSOFALK [Concomitant]
     Indication: PRODUCT USED FOR UNKNOWN INDICATION
     Route: 065

REACTIONS (4)
  - Blood bilirubin increased [Recovering/Resolving]
  - Jaundice [Recovering/Resolving]
  - Haemolysis [Unknown]
  - Hepatic enzyme increased [Recovering/Resolving]
